FAERS Safety Report 24732831 (Version 5)
Quarter: 2025Q3

REPORT INFORMATION
  Report Type: Spontaneous
  Country: EU (occurrence: EU)
  Receive Date: 20241213
  Receipt Date: 20250926
  Transmission Date: 20251020
  Serious: Yes (Hospitalization)
  Sender: BRISTOL-MYERS SQUIBB COMPANY
  Company Number: EU-ROCHE-10000150560

PATIENT
  Age: 60 Year
  Sex: Female
  Weight: 60.3 kg

DRUGS (12)
  1. PACLITAXEL [Suspect]
     Active Substance: PACLITAXEL
     Indication: Triple negative breast cancer
     Dates: start: 20241004, end: 20241128
  2. PACLITAXEL [Suspect]
     Active Substance: PACLITAXEL
     Dates: end: 20241218
  3. ATEZOLIZUMAB [Suspect]
     Active Substance: ATEZOLIZUMAB
     Indication: Triple negative breast cancer
     Dosage: C2 24/10/2024. C3 14/11/2024. DATE OF LAST ADMINISTERED STUDY DRUG BEFORE EVENT ONSET: 14-NOV-2024 CUMULATIVE DOSE SINCE 1ST ADMINISTRATION AND UNTIL SAE ONSET: 4800MG
     Dates: start: 20241004, end: 20241212
  4. TIRAGOLUMAB [Suspect]
     Active Substance: TIRAGOLUMAB
     Indication: Triple negative breast cancer
     Dosage: C2 24/10/2024. C3 14/11/2024. DATE OF LAST ADMINISTERED STUDY DRUG PRIOR TO EVENT: 14-NOV-2024 CUMULATIVE DOSE SINCE 1ST ADMINISTRATION AND UNTIL SAE ONSET: 2400MG
     Dates: start: 20241004, end: 20241212
  5. CARBOPLATIN [Suspect]
     Active Substance: CARBOPLATIN
     Indication: Triple negative breast cancer
     Dates: start: 20241004, end: 20241114
  6. CARBOPLATIN [Suspect]
     Active Substance: CARBOPLATIN
     Dates: end: 20241212
  7. PANTOPRAZOLE [Concomitant]
     Active Substance: PANTOPRAZOLE
     Indication: Orthosis user
     Dosage: 1 TABLET IN THE MORNING
  8. PREDNISONE [Concomitant]
     Active Substance: PREDNISONE
     Indication: Product used for unknown indication
  9. XANAX [Concomitant]
     Active Substance: ALPRAZOLAM
     Indication: Product used for unknown indication
  10. FUNGIZONE [Concomitant]
     Active Substance: AMPHOTERICIN B
     Indication: Product used for unknown indication
  11. BISOPROLOL [Concomitant]
     Active Substance: BISOPROLOL
     Indication: Product used for unknown indication
  12. RUXOLITINIB [Concomitant]
     Active Substance: RUXOLITINIB
     Indication: Product used for unknown indication

REACTIONS (5)
  - Myositis [Recovered/Resolved]
  - Troponin increased [Not Recovered/Not Resolved]
  - Blood creatine phosphokinase increased [Not Recovered/Not Resolved]
  - Muscular weakness [Not Recovered/Not Resolved]
  - Off label use [Unknown]

NARRATIVE: CASE EVENT DATE: 20241203
